FAERS Safety Report 21480667 (Version 1)
Quarter: 2022Q4

REPORT INFORMATION
  Report Type: Spontaneous
  Country: CN (occurrence: CN)
  Receive Date: 20221019
  Receipt Date: 20221019
  Transmission Date: 20230112
  Serious: Yes (Hospitalization)
  Sender: FDA-Public Use
  Company Number: CN-NOVARTISPH-NVSC2022CN234513

PATIENT
  Age: 65 Year
  Sex: Male
  Weight: 57 kg

DRUGS (1)
  1. ACLASTA [Suspect]
     Active Substance: ZOLEDRONIC ACID
     Indication: Bone disorder
     Dosage: 5 MG, ONCE/SINGLE
     Route: 041
     Dates: start: 20220913, end: 20220913

REACTIONS (5)
  - Pyrexia [Unknown]
  - Dizziness [Unknown]
  - Nausea [Unknown]
  - Vomiting [Unknown]
  - Temperature intolerance [Unknown]

NARRATIVE: CASE EVENT DATE: 20220913
